FAERS Safety Report 10048378 (Version 2)
Quarter: 2014Q1

REPORT INFORMATION
  Report Type: Spontaneous
  Country: DE (occurrence: DE)
  Receive Date: 20140331
  Receipt Date: 20140331
  Transmission Date: 20141002
  Serious: Yes (Other)
  Sender: FDA-Public Use
  Company Number: DE-GLAXOSMITHKLINE-D0066624A

PATIENT
  Sex: Female

DRUGS (25)
  1. VIANI FORTE [Suspect]
     Indication: ASTHMA
     Route: 065
     Dates: start: 20081013
  2. FLUTIDE FORTE [Suspect]
     Route: 055
  3. PREDNISOLON [Suspect]
     Dosage: 2.5MG TWICE PER DAY
     Route: 065
  4. DECORTIN [Suspect]
     Dosage: 7.5MG PER DAY
     Route: 065
  5. SOLU-DECORTIN [Suspect]
     Dosage: 250MG SINGLE DOSE
     Route: 065
  6. RELVAR ELLIPTA (FLUTICASONE FUROATE/VILANTEROL) [Suspect]
     Route: 065
  7. SINGULAIR [Concomitant]
     Dosage: 10MG PER DAY
     Route: 065
  8. SPIRIVA [Concomitant]
     Route: 065
  9. TELFAST [Concomitant]
     Dosage: 180MG PER DAY
     Route: 065
  10. BERODUAL [Concomitant]
     Route: 065
  11. L-THYROXIN [Concomitant]
     Route: 065
  12. VALETTE [Concomitant]
     Route: 065
  13. KETOF [Concomitant]
     Dosage: 2MG PER DAY
     Route: 065
  14. PANTOZOL [Concomitant]
     Route: 065
  15. MOTILIUM [Concomitant]
     Route: 065
  16. SULTANOL [Concomitant]
     Route: 055
  17. BEROTEC [Concomitant]
     Route: 065
  18. CLARITHROMYCIN [Concomitant]
     Route: 065
  19. FENISTIL [Concomitant]
     Route: 065
  20. CELESTAMINE [Concomitant]
     Route: 065
     Dates: start: 20081015
  21. BRONCHOSPASMIN [Concomitant]
     Route: 065
     Dates: start: 20081015
  22. MCP [Concomitant]
     Route: 065
     Dates: start: 20081015
  23. VOMEX [Concomitant]
     Route: 065
     Dates: start: 20081015
  24. AMPHO-MORONAL [Concomitant]
     Indication: ORAL CANDIDIASIS
     Route: 065
     Dates: start: 20090715
  25. TAVEGIL [Concomitant]
     Route: 065

REACTIONS (5)
  - Adrenal insufficiency [Unknown]
  - Diabetes mellitus [Unknown]
  - Hypertension [Unknown]
  - Dysphonia [Unknown]
  - Asthma [Unknown]
